FAERS Safety Report 8947717 (Version 1)
Quarter: 2012Q4

REPORT INFORMATION
  Report Type: Spontaneous
  Country: JP (occurrence: None)
  Receive Date: 20121127
  Receipt Date: 20121127
  Transmission Date: 20130627
  Serious: Yes (Other)
  Sender: FDA-Public Use
  Company Number: DSA_60961_2012

PATIENT
  Age: 63 Year
  Sex: Male

DRUGS (3)
  1. FLUOROURACIL (FLUOROURACIL) [Suspect]
     Indication: HYPOPHARYNGEAL CANCER
  2. CISPLATIN [Suspect]
     Indication: HYPOPHARYNGEAL CANCER
  3. DOCETAXEL [Suspect]
     Indication: HYPOPHARYNGEAL CANCER

REACTIONS (2)
  - Neuropathy peripheral [None]
  - Febrile neutropenia [None]
